FAERS Safety Report 8032545-X (Version None)
Quarter: 2011Q4

REPORT INFORMATION
  Report Type: 
  Country: None (occurrence: None)
  Receive Date: 20111202
  Receipt Date: 20110128
  Transmission Date: 20120403
  Serious: Yes (Disabling)
  Sender: FDA-Public Use
  Company Number: WAES 1101USA03581

PATIENT
  Age: 56 Year
  Sex: Female
  Weight: 88.4514 kg

DRUGS (6)
  1. FOSAMAX PLUS D [Suspect]
     Indication: OSTEOPOROSIS
     Dosage: 70MG/2800 IU WKY/PO
     Route: 048
     Dates: start: 20051030, end: 20071028
  2. FOSAMAX PLUS D [Suspect]
     Indication: OSTEOPENIA
     Dosage: 70MG/2800 IU WKY/PO
     Route: 048
     Dates: start: 20051030, end: 20071028
  3. FOSAMAX PLUS D [Suspect]
     Dosage: 70MG/2800 IU/WKY/PO
     Route: 048
     Dates: start: 20071028
  4. FOSAMAX [Suspect]
     Indication: OSTEOPOROSIS
     Dosage: 70 MG/BID/PO
     Route: 048
     Dates: start: 20050412, end: 20050624
  5. FOSAMAX [Suspect]
     Indication: OSTEOPOROSIS PROPHYLAXIS
     Dosage: 70 MG/BID/PO
     Route: 048
     Dates: start: 20050412, end: 20050624
  6. SYNTHROID [Concomitant]

REACTIONS (18)
  - PERIPHERAL VASCULAR DISORDER [None]
  - OSTEONECROSIS OF JAW [None]
  - BLOOD PRESSURE INCREASED [None]
  - ASTHMA [None]
  - TOOTH INFECTION [None]
  - BLOOD DISORDER [None]
  - BURNING SENSATION [None]
  - OVERDOSE [None]
  - TOOTH DISORDER [None]
  - RENAL FAILURE [None]
  - GINGIVAL BLEEDING [None]
  - PERIODONTITIS [None]
  - CYST [None]
  - FISTULA DISCHARGE [None]
  - SNORING [None]
  - GLOMERULAR FILTRATION RATE [None]
  - SLEEP APNOEA SYNDROME [None]
  - RASH MACULAR [None]
